FAERS Safety Report 7494673-7 (Version None)
Quarter: 2011Q2

REPORT INFORMATION
  Report Type: 
  Country: None (occurrence: None)
  Receive Date: 20110520
  Receipt Date: 20110512
  Transmission Date: 20111010
  Serious: Yes (Other)
  Sender: FDA-Public Use
  Company Number: IE-GENENTECH-314732

PATIENT
  Sex: Female

DRUGS (6)
  1. MELPHALAN HYDROCHLORIDE [Concomitant]
     Indication: B-CELL LYMPHOMA
     Dosage: UNK
  2. RITUXAN [Suspect]
     Dosage: UNK
     Route: 042
     Dates: end: 20101201
  3. RITUXAN [Suspect]
     Indication: B-CELL LYMPHOMA
     Dosage: 667.5 MG, UNK
     Route: 042
     Dates: start: 20100305, end: 20101014
  4. VINCRISTINE [Concomitant]
     Indication: B-CELL LYMPHOMA
     Dosage: UNK
  5. DOXORUBICIN HCL [Concomitant]
     Indication: B-CELL LYMPHOMA
     Dosage: UNK
  6. CYCLOPHOSPHAMIDE [Concomitant]
     Indication: B-CELL LYMPHOMA
     Dosage: UNK

REACTIONS (2)
  - MUSCULAR WEAKNESS [None]
  - BACK PAIN [None]
